FAERS Safety Report 6681919-8 (Version None)
Quarter: 2010Q2

REPORT INFORMATION
  Report Type: 
  Country: None (occurrence: None)
  Receive Date: 20100409
  Receipt Date: 20100405
  Transmission Date: 20101027
  Serious: Yes (Other)
  Sender: FDA-Public Use
  Company Number: JP-1181079

PATIENT
  Age: 70 Year
  Sex: Male

DRUGS (6)
  1. TRAVATAN Z [Suspect]
     Indication: OPEN ANGLE GLAUCOMA
     Dosage: 1 GTT QD OU, OPHTHALMIC
     Route: 047
     Dates: start: 20090511
  2. TRUSOPT [Concomitant]
  3. DETANOL (BUNAZOSIN HYDROCHLORIDE)Q [Concomitant]
  4. ASPIRIN [Concomitant]
  5. LIPITOR [Concomitant]
  6. CANDESARTAN CILEXETIL [Concomitant]

REACTIONS (8)
  - CILIARY HYPERAEMIA [None]
  - CORNEAL DEPOSITS [None]
  - INTRAOCULAR PRESSURE INCREASED [None]
  - IRIDOCYCLITIS [None]
  - OCULAR HYPERAEMIA [None]
  - UNEVALUABLE EVENT [None]
  - UVEITIS [None]
  - VISION BLURRED [None]
